FAERS Safety Report 17076618 (Version 2)
Quarter: 2019Q4

REPORT INFORMATION
  Report Type: Spontaneous
  Country: US (occurrence: US)
  Receive Date: 20191126
  Receipt Date: 20191202
  Transmission Date: 20200122
  Serious: No
  Sender: FDA-Public Use
  Company Number: US-SA-2019SA326499

PATIENT
  Age: 90 Year
  Sex: Male

DRUGS (1)
  1. LANTUS SOLOSTAR [Suspect]
     Active Substance: INSULIN GLARGINE
     Indication: TYPE 2 DIABETES MELLITUS
     Dosage: 30 U, QD
     Route: 065

REACTIONS (6)
  - Incorrect dose administered [Unknown]
  - Blood glucose increased [Unknown]
  - Device breakage [Unknown]
  - Product dose omission [Unknown]
  - Hypoacusis [Unknown]
  - Wrong technique in product usage process [Unknown]
